FAERS Safety Report 6152287-5 (Version None)
Quarter: 2009Q2

REPORT INFORMATION
  Report Type: 
  Country: None (occurrence: None)
  Receive Date: 20090410
  Receipt Date: 20090331
  Transmission Date: 20091009
  Serious: Yes (Other)
  Sender: FDA-Public Use
  Company Number: JP-VALEANT-2009VX000569

PATIENT
  Age: 33 Year
  Sex: Female

DRUGS (1)
  1. DIHYDROERGOTAMINE MESYLATE [Suspect]
     Route: 048

REACTIONS (1)
  - SUICIDE ATTEMPT [None]
